FAERS Safety Report 8153109-3 (Version None)
Quarter: 2012Q1

REPORT INFORMATION
  Report Type: 
  Country: None (occurrence: None)
  Receive Date: 20120221
  Receipt Date: 20120203
  Transmission Date: 20120608
  Serious: Yes (Life-Threatening)
  Sender: FDA-Public Use
  Company Number: JP-ASTELLAS-2011US002367

PATIENT
  Sex: Male
  Weight: 51 kg

DRUGS (23)
  1. VFEND [Suspect]
     Indication: CRANIAL NERVE DISORDER
     Dosage: 300 MG, BID
     Route: 041
     Dates: start: 20101117, end: 20101125
  2. VFEND [Suspect]
     Dosage: 200 MG, BID
     Route: 048
     Dates: start: 20110410, end: 20110516
  3. LANTUS [Concomitant]
     Indication: PRODUCT USED FOR UNKNOWN INDICATION
     Dosage: UNK
     Route: 065
  4. VFEND [Suspect]
     Indication: SYSTEMIC MYCOSIS
     Dosage: 220 MG, BID
     Route: 041
     Dates: start: 20110111, end: 20110409
  5. FUNGIZONE [Suspect]
     Dosage: 50 MG, UID/QD
     Route: 061
     Dates: start: 20110120, end: 20110120
  6. HUMALOG [Concomitant]
     Indication: PRODUCT USED FOR UNKNOWN INDICATION
     Dosage: UNK
     Route: 065
  7. HYDROCORTISONE SODIUM SUCCINATE [Concomitant]
     Indication: SINUSITIS FUNGAL
     Dosage: 500 MG, UID/QD
     Route: 065
     Dates: start: 20101117, end: 20101119
  8. VFEND [Suspect]
     Dosage: 300 MG, BID
     Route: 048
     Dates: start: 20110409, end: 20110409
  9. FUNGUARD [Suspect]
     Indication: FUNGAL RHINITIS
     Dosage: 150 MG, UID/QD
     Route: 041
     Dates: start: 20101218, end: 20110412
  10. FUNGIZONE [Suspect]
     Dosage: 50 MG, UID/QD
     Route: 061
     Dates: start: 20110209, end: 20110209
  11. AMBISOME [Suspect]
     Dosage: 120 MG, UID/QD
     Route: 042
     Dates: start: 20101117, end: 20101130
  12. FUNGIZONE [Suspect]
     Dosage: 50 MG, UID/QD
     Route: 061
     Dates: start: 20110106, end: 20110106
  13. FUNGIZONE [Suspect]
     Dosage: 50 MG, UID/QD
     Route: 061
     Dates: start: 20110113, end: 20110113
  14. AMBISOME [Suspect]
     Indication: SYSTEMIC MYCOSIS
     Dosage: 220 MG, UID/QD
     Route: 041
     Dates: start: 20101211, end: 20110408
  15. METFORMIN HCL [Concomitant]
     Indication: PRODUCT USED FOR UNKNOWN INDICATION
     Dosage: UNK
     Route: 065
  16. ACTOS [Concomitant]
     Indication: PRODUCT USED FOR UNKNOWN INDICATION
     Dosage: UNK
     Route: 065
  17. FUNGIZONE [Suspect]
     Dosage: 50 MG, UID/QD
     Route: 061
     Dates: start: 20110203, end: 20110203
  18. EPINASTINE HYDROCHLORIDE [Concomitant]
     Indication: PRODUCT USED FOR UNKNOWN INDICATION
     Dosage: UNK
     Route: 065
  19. MEROPENEM [Concomitant]
     Indication: INFECTION
     Dosage: 1.5 G, UID/QD
     Route: 065
     Dates: start: 20101116, end: 20101123
  20. AMBISOME [Suspect]
     Dosage: 165 MG, UID/QD
     Route: 042
     Dates: start: 20101201, end: 20101210
  21. VFEND [Suspect]
     Dosage: 200 MG, BID
     Route: 041
     Dates: start: 20101202, end: 20110110
  22. FUNGIZONE [Suspect]
     Indication: FUNGAL INFECTION
     Dosage: 50 MG, UID/QD
     Route: 065
     Dates: start: 20110217, end: 20110217
  23. KINEDAK [Concomitant]
     Indication: PRODUCT USED FOR UNKNOWN INDICATION
     Dosage: UNK
     Route: 065

REACTIONS (3)
  - PANCYTOPENIA [None]
  - HEPATIC FUNCTION ABNORMAL [None]
  - RENAL IMPAIRMENT [None]
